FAERS Safety Report 9846846 (Version 1)
Quarter: 2013Q4

REPORT INFORMATION
  Report Type: Spontaneous
  Country: US (occurrence: None)
  Receive Date: 20131219
  Receipt Date: 20131219
  Transmission Date: 20140711
  Serious: Yes (Death)
  Sender: FDA-Public Use
  Company Number: 163-20785-13071648

PATIENT
  Age: 85 Year
  Sex: Female
  Weight: 55.34 kg

DRUGS (1)
  1. THALIDOMID [Suspect]
     Indication: MALIGNANT MELANOMA
     Dosage: 1) (100 MILLIGRAM, CAPSULES) 09MAY2013 - PERMANENTLY DISCONTINUED THERAPY DATES
     Dates: start: 20130509

REACTIONS (1)
  - Malignant melanoma [None]
